FAERS Safety Report 8954463 (Version 1)
Quarter: 2012Q4

REPORT INFORMATION
  Report Type: 
  Country: GB (occurrence: GB)
  Receive Date: 20121210
  Receipt Date: 20121210
  Transmission Date: 20130627
  Serious: Yes (Hospitalization)
  Sender: FDA-Public Use
  Company Number: GB-US-EMD SERONO, INC.-7179914

PATIENT
  Sex: Male

DRUGS (3)
  1. REBIF [Suspect]
     Indication: PRODUCT USED FOR UNKNOWN INDICATION
     Route: 058
     Dates: start: 2004, end: 2012
  2. REBIF [Suspect]
     Route: 058
     Dates: start: 2012
  3. ANALGESIA (ANALGESIC) [Concomitant]
     Indication: PREMEDICATION

REACTIONS (4)
  - Nephrolithiasis [Unknown]
  - Multiple sclerosis relapse [Recovering/Resolving]
  - Injection site pain [Not Recovered/Not Resolved]
  - Drug dose omission [Unknown]
